FAERS Safety Report 5688523-9 (Version None)
Quarter: 2008Q1

REPORT INFORMATION
  Report Type: 
  Country: None (occurrence: None)
  Receive Date: 20080331
  Receipt Date: 20080326
  Transmission Date: 20080703
  Serious: Yes (Hospitalization)
  Sender: FDA-Public Use
  Company Number: US-TEVA-169278USA

PATIENT
  Age: 16 Year
  Sex: Male

DRUGS (7)
  1. CIPROFLOXACIN HYDROCHLORIDE 250 MG, 500 MG + 750 MG TABLETS [Suspect]
     Indication: PERIANAL ABSCESS
     Route: 042
  2. AZATHIOPRINE [Concomitant]
  3. MESALAMINE [Concomitant]
  4. RANITIDINE [Concomitant]
  5. FERROUS SULFATE TAB [Concomitant]
  6. METRONIDAZOLE HCL [Concomitant]
  7. INFLIXIMAB [Concomitant]

REACTIONS (3)
  - BRADYCARDIA [None]
  - DISCOMFORT [None]
  - ELECTROCARDIOGRAM QT PROLONGED [None]
